FAERS Safety Report 25897098 (Version 1)
Quarter: 2025Q4

REPORT INFORMATION
  Report Type: Spontaneous
  Country: US (occurrence: US)
  Receive Date: 20251008
  Receipt Date: 20251008
  Transmission Date: 20260118
  Serious: No
  Sender: SANOFI AVENTIS
  Company Number: US-SANOFI-02677378

PATIENT
  Age: 83 Year
  Sex: Female

DRUGS (2)
  1. LANTUS [Suspect]
     Active Substance: INSULIN GLARGINE
     Indication: Diabetes mellitus
     Dosage: QD
     Route: 065
  2. LANTUS [Suspect]
     Active Substance: INSULIN GLARGINE
     Dosage: QD
     Route: 065

REACTIONS (2)
  - Glycosylated haemoglobin increased [Unknown]
  - Intentional product misuse [Unknown]
